FAERS Safety Report 26047782 (Version 1)
Quarter: 2025Q4

REPORT INFORMATION
  Report Type: Spontaneous
  Country: GB (occurrence: GB)
  Receive Date: 20251114
  Receipt Date: 20251114
  Transmission Date: 20260118
  Serious: Yes (Other)
  Sender: DR REDDYS
  Company Number: None

PATIENT
  Age: 39 Year
  Sex: Male
  Weight: 100 kg

DRUGS (1)
  1. MONTELUKAST [Suspect]
     Active Substance: MONTELUKAST
     Indication: Hypopnoea
     Dosage: 10ML REDUCED TO 5
     Dates: start: 20250201, end: 20250801

REACTIONS (1)
  - Anger [Unknown]

NARRATIVE: CASE EVENT DATE: 20250301
